FAERS Safety Report 7538449-0 (Version None)
Quarter: 2011Q2

REPORT INFORMATION
  Report Type: 
  Country: None (occurrence: None)
  Receive Date: 20110609
  Receipt Date: 20110606
  Transmission Date: 20111010
  Serious: Yes (Hospitalization, Other)
  Sender: FDA-Public Use
  Company Number: US-MERCK-1103USA02273

PATIENT
  Age: 70 Year
  Sex: Female
  Weight: 70 kg

DRUGS (5)
  1. COZAAR [Suspect]
     Route: 048
     Dates: start: 20080709, end: 20110325
  2. PREVACID [Concomitant]
     Route: 065
  3. COZAAR [Suspect]
     Indication: HYPERTENSION
     Route: 048
  4. COZAAR [Suspect]
     Route: 048
     Dates: start: 20110605, end: 20110605
  5. COZAAR [Suspect]
     Route: 048
     Dates: start: 19910301

REACTIONS (17)
  - MALAISE [None]
  - STRESS [None]
  - ASTHENIA [None]
  - MITRAL VALVE INCOMPETENCE [None]
  - GENERAL SYMPTOM [None]
  - BLOOD PRESSURE INADEQUATELY CONTROLLED [None]
  - HYPERLIPIDAEMIA [None]
  - THROAT TIGHTNESS [None]
  - PALPITATIONS [None]
  - CHEST DISCOMFORT [None]
  - DRUG HYPERSENSITIVITY [None]
  - GASTROINTESTINAL DISORDER [None]
  - ELECTROCARDIOGRAM ABNORMAL [None]
  - FEELING ABNORMAL [None]
  - ADVERSE EVENT [None]
  - DYSPNOEA [None]
  - GALLBLADDER DISORDER [None]
